FAERS Safety Report 12074615 (Version 1)
Quarter: 2016Q1

REPORT INFORMATION
  Report Type: Spontaneous
  Country: FR (occurrence: FR)
  Receive Date: 20160212
  Receipt Date: 20160212
  Transmission Date: 20160526
  Serious: Yes (Other)
  Sender: FDA-Public Use
  Company Number: FR-BAUSCH-BL-2016-003701

PATIENT
  Age: 92 Year
  Sex: Female

DRUGS (2)
  1. ACICLOVIR ACTAVIS (ACYCLOVIR) [Suspect]
     Active Substance: ACYCLOVIR
     Indication: MYELITIS
     Route: 042
  2. METHOTREXATE [Concomitant]
     Active Substance: METHOTREXATE
     Indication: PRODUCT USED FOR UNKNOWN INDICATION
     Route: 065
     Dates: start: 2009

REACTIONS (1)
  - Acute kidney injury [Recovered/Resolved]
